FAERS Safety Report 7149332-7 (Version None)
Quarter: 2010Q4

REPORT INFORMATION
  Report Type: 
  Country: None (occurrence: None)
  Receive Date: 20101209
  Receipt Date: 20101202
  Transmission Date: 20110411
  Serious: Yes (Other)
  Sender: FDA-Public Use
  Company Number: IT-ABBOTT-10P-083-0687427-00

PATIENT
  Age: 13 Year
  Sex: Male
  Weight: 35.5 kg

DRUGS (4)
  1. DEPAKENE [Suspect]
     Indication: EPILEPSY
     Route: 048
     Dates: start: 20101102
  2. KEPPRA [Suspect]
     Indication: EPILEPSY
     Dosage: 2000 MG DAILY
     Route: 048
     Dates: start: 20100901, end: 20101101
  3. TOLEP [Concomitant]
     Indication: PRODUCT USED FOR UNKNOWN INDICATION
  4. TEGRETOL [Concomitant]
     Indication: PRODUCT USED FOR UNKNOWN INDICATION

REACTIONS (7)
  - ABDOMINAL PAIN UPPER [None]
  - DRUG INEFFECTIVE [None]
  - EPILEPSY [None]
  - FATIGUE [None]
  - HEADACHE [None]
  - VOMITING [None]
  - WEIGHT DECREASED [None]
